FAERS Safety Report 4622352-X (Version None)
Quarter: 2005Q1

REPORT INFORMATION
  Report Type: 
  Country: None (occurrence: None)
  Receive Date: 20050328
  Receipt Date: 20050316
  Transmission Date: 20050727
  Serious: Yes (Hospitalization)
  Sender: FDA-Public Use
  Company Number: 2005017835

PATIENT
  Age: 40 Year
  Sex: Female

DRUGS (23)
  1. PREDNISONE TAB [Suspect]
     Indication: SYSTEMIC LUPUS ERYTHEMATOSUS
     Dosage: 70 MG (1 IN 24 HR) ORAL
     Route: 048
     Dates: end: 20041208
  2. ATENOLOL [Suspect]
     Indication: ESSENTIAL HYPERTENSION
     Dosage: 50 MG (25 MG, 1 IN 12 HR) ORAL
     Route: 048
     Dates: end: 20041208
  3. MIDAZOLAM INJECTION (MIDAZOLAM) [Suspect]
     Indication: ILL-DEFINED DISORDER
     Dosage: INTRAVENOUS
     Route: 042
     Dates: start: 20041208, end: 20041215
  4. CEFTRIAZONE SODIUM (CEFTRIAXONE SODIUM) [Suspect]
     Indication: SEPSIS
     Dosage: 2 GRAM (1 IN 24 HOUR) INTRAVENOUS
     Route: 042
     Dates: start: 20041208, end: 20041212
  5. URAPIDIL (URAPIDIL) [Suspect]
     Indication: ESSENTIAL HYPERTENSION
     Dosage: 60 MG (30 MG, 1 IN 12 HR) ORAL
     Route: 048
     Dates: end: 20041208
  6. OFLOXACIN [Suspect]
     Indication: SEPSIS
     Dosage: 400 MG (200 MG 1 IN 12)
     Dates: start: 20041208, end: 20041212
  7. VALPROATE SODIUM [Concomitant]
  8. FOSINOPRIL [Concomitant]
  9. SUXAMETHONIUM CHLORIDE [Concomitant]
  10. FUROSEMIDE [Concomitant]
  11. ALLOPURINOL [Concomitant]
  12. FENTANYL [Concomitant]
  13. CISATRACURIUM BESILATE [Concomitant]
  14. ESOMEPRAZOLE [Concomitant]
  15. CACIT (CALCIUM CARBONATE, CITRIC ACID) [Concomitant]
  16. FLUINDIONE [Concomitant]
  17. ROCURONIUM BROMIDE [Concomitant]
  18. ETOMIDATE [Concomitant]
  19. CISATRACURIUM BESILATE [Concomitant]
  20. INSUMAN (INSULIN HUMAN INJECTION, ISOPHANE, INSULIN ZINC PROTAMINE INJ [Suspect]
  21. HYDROCORTISONE [Concomitant]
  22. HEPARIN [Concomitant]
  23. PRAVASTATIN SODIUM [Concomitant]

REACTIONS (8)
  - ANAEMIA [None]
  - CONDITION AGGRAVATED [None]
  - DIALYSIS [None]
  - LUNG DISORDER [None]
  - RENAL IMPAIRMENT [None]
  - SEPSIS [None]
  - SEPTIC SHOCK [None]
  - THROMBOCYTOPENIA [None]
